FAERS Safety Report 4978475-9 (Version None)
Quarter: 2006Q2

REPORT INFORMATION
  Report Type: 
  Country: None (occurrence: None)
  Receive Date: 20060420
  Receipt Date: 20060410
  Transmission Date: 20061013
  Serious: Yes (Hospitalization)
  Sender: FDA-Public Use
  Company Number: CH-ABBOTT-06P-151-0330370-00

PATIENT
  Age: 66 Year
  Sex: Male

DRUGS (7)
  1. DEPAKENE [Suspect]
     Indication: BIPOLAR DISORDER
     Route: 048
     Dates: start: 20020301, end: 20060124
  2. DEPAKENE [Suspect]
     Dates: start: 20060126
  3. LITHIUM CARBONATE [Suspect]
     Indication: BIPOLAR DISORDER
     Route: 048
     Dates: start: 19670101, end: 20060124
  4. QUETIAPINE FUMARATE [Interacting]
     Indication: BIPOLAR DISORDER
     Route: 048
     Dates: end: 20051201
  5. QUETIAPINE FUMARATE [Interacting]
     Dates: end: 20060121
  6. QUETIAPINE FUMARATE [Interacting]
     Dates: start: 20060122, end: 20060123
  7. QUETIAPINE FUMARATE [Interacting]
     Dates: start: 20060127

REACTIONS (6)
  - CHOLECYSTITIS ACUTE [None]
  - DEPRESSED LEVEL OF CONSCIOUSNESS [None]
  - DIABETES INSIPIDUS [None]
  - DRUG INTERACTION [None]
  - HYPERNATRAEMIA [None]
  - PARKINSON'S DISEASE [None]
